FAERS Safety Report 7487014-2 (Version None)
Quarter: 2011Q2

REPORT INFORMATION
  Report Type: 
  Country: None (occurrence: None)
  Receive Date: 20110518
  Receipt Date: 20110510
  Transmission Date: 20111010
  Serious: Yes (Other)
  Sender: FDA-Public Use
  Company Number: GR-BRISTOL-MYERS SQUIBB COMPANY-15731979

PATIENT
  Age: 76 Year
  Sex: Female
  Weight: 90 kg

DRUGS (3)
  1. VALTREX [Interacting]
     Indication: HERPES ZOSTER
     Dosage: LAST DOSE 0N 24DEC2009
     Route: 048
     Dates: start: 20091223, end: 20091224
  2. LOPRESSOR [Concomitant]
  3. IRBESARTAN + HYDROCHLOROTHIAZIDE [Suspect]

REACTIONS (3)
  - DRUG INTERACTION [None]
  - HERPES ZOSTER [None]
  - RENAL FAILURE ACUTE [None]
